FAERS Safety Report 8789432 (Version 1)
Quarter: 2012Q4

REPORT INFORMATION
  Report Type: Spontaneous
  Country: GB (occurrence: None)
  Receive Date: 20120906
  Receipt Date: 20120906
  Transmission Date: 20130627
  Serious: Yes (Life-Threatening)
  Sender: FDA-Public Use
  Company Number: GB-BANPHARM-20120092

PATIENT
  Age: 51 Year

DRUGS (1)
  1. IBUPROFEN [Suspect]
     Route: 048

REACTIONS (1)
  - Haemorrhage [None]
